FAERS Safety Report 18326174 (Version 4)
Quarter: 2022Q1

REPORT INFORMATION
  Report Type: Spontaneous
  Country: US (occurrence: US)
  Receive Date: 20200929
  Receipt Date: 20220214
  Transmission Date: 20220423
  Serious: No
  Sender: FDA-Public Use
  Company Number: US-PFIZER INC-2020375723

PATIENT
  Age: 65 Year
  Sex: Female

DRUGS (3)
  1. IBRANCE [Suspect]
     Active Substance: PALBOCICLIB
     Indication: Breast cancer female
     Dosage: 75 MG, CYCLIC [ONCE DAILY 21 DAYS Q (EVERY) 28 DAYS]
     Route: 048
     Dates: start: 20200109
  2. IBRANCE [Suspect]
     Active Substance: PALBOCICLIB
     Dosage: 75 MG, CYCLIC (QD (EVERY DAY) X 21 DAYS)
     Route: 048
     Dates: start: 20200109
  3. IBRANCE [Suspect]
     Active Substance: PALBOCICLIB
     Dosage: 75 MG, CYCLIC (QD (EVERY DAY)X 21D THEN 7D OFF)
     Dates: start: 20200110, end: 20210609

REACTIONS (2)
  - White blood cell count decreased [Not Recovered/Not Resolved]
  - Product dose omission issue [Unknown]

NARRATIVE: CASE EVENT DATE: 20200101
